FAERS Safety Report 8289674 (Version 3)
Quarter: 2013Q4

REPORT INFORMATION
  Report Type: Spontaneous
  Country: US (occurrence: US)
  Receive Date: 20111214
  Receipt Date: 20131106
  Transmission Date: 20140711
  Serious: No
  Sender: FDA-Public Use
  Company Number: US-AMGEN-USASP2011063384

PATIENT
  Age: 65 Year
  Sex: Female
  Weight: 65.3 kg

DRUGS (2)
  1. ENBREL [Suspect]
     Indication: PSORIATIC ARTHROPATHY
     Dosage: 50 MG, ONCE A WEEK
     Route: 058
     Dates: start: 20110427, end: 2013
  2. MTX                                /00113801/ [Concomitant]
     Indication: PSORIATIC ARTHROPATHY
     Dosage: UNK UNK, QWK
     Route: 048

REACTIONS (2)
  - Breast mass [Not Recovered/Not Resolved]
  - Injection site pain [Not Recovered/Not Resolved]
